FAERS Safety Report 17919418 (Version 1)
Quarter: 2020Q2

REPORT INFORMATION
  Report Type: Spontaneous
  Country: US (occurrence: US)
  Receive Date: 20200619
  Receipt Date: 20200619
  Transmission Date: 20200714
  Serious: No
  Sender: FDA-Public Use
  Company Number: US-CATALYST PHARMACEUTICALS, INC-2020CAT00100

PATIENT
  Sex: Male

DRUGS (1)
  1. FIRDAPSE [Suspect]
     Active Substance: AMIFAMPRIDINE

REACTIONS (2)
  - Lipoma [Not Recovered/Not Resolved]
  - Limb mass [Not Recovered/Not Resolved]
